FAERS Safety Report 7243661-4 (Version None)
Quarter: 2011Q1

REPORT INFORMATION
  Report Type: 
  Country: None (occurrence: None)
  Receive Date: 20110125
  Receipt Date: 20110120
  Transmission Date: 20110831
  Serious: Yes (Life-Threatening, Hospitalization)
  Sender: FDA-Public Use
  Company Number: PHHY2010DE89779

PATIENT
  Sex: Female

DRUGS (5)
  1. EYE DROPS [Concomitant]
  2. SANDIMMUNE [Suspect]
     Dosage: 100 MG, UNK
     Route: 048
  3. SANDIMMUNE [Suspect]
     Dosage: 50 MG PER DAY
  4. SANDIMMUNE [Suspect]
     Dosage: 150 - 200 MG, UNK
     Route: 048
  5. SANDIMMUNE [Suspect]
     Indication: SJOGREN'S SYNDROME
     Dosage: 250 MG, UNK
     Route: 048

REACTIONS (2)
  - SUBARACHNOID HAEMORRHAGE [None]
  - DRUG PRESCRIBING ERROR [None]
